FAERS Safety Report 4519335-7 (Version None)
Quarter: 2004Q4

REPORT INFORMATION
  Report Type: 
  Country: None (occurrence: None)
  Receive Date: 20041206
  Receipt Date: 20041202
  Transmission Date: 20050328
  Serious: Yes (Hospitalization)
  Sender: FDA-Public Use
  Company Number: 2004-11-1262

PATIENT
  Age: 67 Year
  Sex: Male
  Weight: 87 kg

DRUGS (2)
  1. ZOFRAN [Suspect]
     Indication: PROPHYLAXIS
     Dosage: 4MG PER DAY
     Route: 048
     Dates: start: 20040714
  2. TEMOZOLOMIDE [Suspect]
     Indication: GLIOBLASTOMA
     Dosage: 285MG PER DAY
     Route: 048
     Dates: start: 20040714, end: 20041018

REACTIONS (2)
  - CIRCULATORY COLLAPSE [None]
  - EXANTHEM [None]
